FAERS Safety Report 7971102-8 (Version None)
Quarter: 2011Q4

REPORT INFORMATION
  Report Type: 
  Country: None (occurrence: None)
  Receive Date: 20111212
  Receipt Date: 20111212
  Transmission Date: 20120403
  Serious: Yes (Other)
  Sender: FDA-Public Use
  Company Number: None

PATIENT
  Age: 31 Year
  Sex: Female
  Weight: 113.39 kg

DRUGS (1)
  1. CIPROFLOXACIN [Suspect]
     Indication: PNEUMONIA
     Dosage: 500MG
     Route: 048
     Dates: start: 20111201, end: 20111208

REACTIONS (10)
  - TINNITUS [None]
  - SENSORY LOSS [None]
  - HYPOACUSIS [None]
  - NAIL DISCOLOURATION [None]
  - MUSCLE SPASMS [None]
  - EAR PRURITUS [None]
  - SKIN DISCOLOURATION [None]
  - PERIPHERAL COLDNESS [None]
  - LOCAL SWELLING [None]
  - ORAL PRURITUS [None]
